FAERS Safety Report 24547504 (Version 1)
Quarter: 2024Q4

REPORT INFORMATION
  Report Type: Spontaneous
  Country: US (occurrence: US)
  Receive Date: 20241025
  Receipt Date: 20241025
  Transmission Date: 20250114
  Serious: No
  Sender: DR REDDYS
  Company Number: US-DRL-USA-SPO/USA/24/0015523

PATIENT
  Age: 36 Year
  Sex: Male

DRUGS (1)
  1. NICOTINE [Suspect]
     Active Substance: NICOTINE
     Indication: Smoking cessation therapy
     Dosage: QUANTITY: (14 IN 1 CARTON)
     Route: 062
     Dates: start: 20240719, end: 20240721

REACTIONS (1)
  - Application site irritation [Unknown]
